FAERS Safety Report 22596426 (Version 1)
Quarter: 2023Q2

REPORT INFORMATION
  Report Type: Spontaneous
  Country: US (occurrence: US)
  Receive Date: 20230613
  Receipt Date: 20230613
  Transmission Date: 20230722
  Serious: No
  Sender: FDA-Public Use
  Company Number: US-BAYER-2023A081749

PATIENT
  Age: 75 Year
  Sex: Female

DRUGS (1)
  1. ASTEPRO [Suspect]
     Active Substance: AZELASTINE HYDROCHLORIDE
     Indication: Product used for unknown indication
     Dosage: 1 SPRAYED
     Dates: end: 20230608

REACTIONS (2)
  - Dry mouth [Recovering/Resolving]
  - Tongue dry [Recovering/Resolving]

NARRATIVE: CASE EVENT DATE: 20230601
